FAERS Safety Report 5292497-2 (Version None)
Quarter: 2007Q2

REPORT INFORMATION
  Report Type: 
  Country: None (occurrence: None)
  Receive Date: 20070410
  Receipt Date: 20070329
  Transmission Date: 20071010
  Serious: Yes (Other)
  Sender: FDA-Public Use
  Company Number: GB-PFIZER INC-2007025608

PATIENT
  Age: 62 Year
  Sex: Female

DRUGS (1)
  1. LYRICA [Suspect]
     Route: 048

REACTIONS (1)
  - EYELID OEDEMA [None]
